FAERS Safety Report 18220781 (Version 1)
Quarter: 2020Q3

REPORT INFORMATION
  Report Type: Spontaneous
  Country: DE (occurrence: DE)
  Receive Date: 20200902
  Receipt Date: 20200902
  Transmission Date: 20201103
  Serious: Yes (Other)
  Sender: FDA-Public Use
  Company Number: DE-AUROBINDO-AUR-APL-2020-045858

PATIENT
  Age: 36 Year
  Sex: Female

DRUGS (1)
  1. BUCAIN HYPERBAR 5 MG/ML  SOLUTION FOR INJECTION [Suspect]
     Active Substance: BUPIVACAINE
     Indication: ANAESTHESIA
     Dosage: UNK
     Route: 065
     Dates: start: 20200629, end: 20200629

REACTIONS (1)
  - Drug ineffective [Unknown]

NARRATIVE: CASE EVENT DATE: 20200629
